FAERS Safety Report 14447856 (Version 4)
Quarter: 2018Q1

REPORT INFORMATION
  Report Type: Spontaneous
  Country: FR (occurrence: FR)
  Receive Date: 20180126
  Receipt Date: 20180216
  Transmission Date: 20180509
  Serious: Yes (Life-Threatening, Hospitalization, Other)
  Sender: FDA-Public Use
  Company Number: FR-SA-2018SA014262

PATIENT
  Age: 62 Year
  Sex: Male

DRUGS (27)
  1. PANTOPRAZOLE [Suspect]
     Active Substance: PANTOPRAZOLE
     Route: 065
  2. CLONAZEPAM. [Suspect]
     Active Substance: CLONAZEPAM
     Route: 065
  3. SUFENTANIL [Suspect]
     Active Substance: SUFENTANIL
     Route: 065
  4. HYDROXYZINE [Suspect]
     Active Substance: HYDROXYZINE HYDROCHLORIDE
     Route: 065
  5. NORADRENALINE [Concomitant]
     Active Substance: NOREPINEPHRINE
     Route: 065
  6. MIDAZOLAM [Suspect]
     Active Substance: MIDAZOLAM HYDROCHLORIDE
     Indication: SEDATION
     Route: 065
  7. OXAZEPAM. [Suspect]
     Active Substance: OXAZEPAM
     Route: 065
  8. CISATRACURIUM BESILATE [Suspect]
     Active Substance: CISATRACURIUM BESYLATE
     Route: 065
  9. AMITRIPTYLINE [Suspect]
     Active Substance: AMITRIPTYLINE
     Route: 065
  10. NORDAZEPAM [Concomitant]
     Active Substance: NORDAZEPAM
     Route: 065
  11. VERAPAMIL [Suspect]
     Active Substance: VERAPAMIL HYDROCHLORIDE
     Route: 065
  12. CYAMEMAZINE [Suspect]
     Active Substance: CYAMEMAZINE
     Indication: AGITATION
     Route: 065
  13. BROMAZEPAM [Suspect]
     Active Substance: BROMAZEPAM
     Route: 065
  14. NORDAZEPAM [Suspect]
     Active Substance: NORDAZEPAM
     Route: 065
  15. CETIRIZINE [Suspect]
     Active Substance: CETIRIZINE HYDROCHLORIDE
     Route: 065
  16. URAPIDIL [Suspect]
     Active Substance: URAPIDIL
     Route: 065
  17. HYDROCHLORIC ACID [Suspect]
     Active Substance: HYDROCHLORIC ACID
     Route: 065
  18. VANCOMYCIN [Concomitant]
     Active Substance: VANCOMYCIN
     Route: 065
  19. TAZOCILLIN [Concomitant]
     Active Substance: PIPERACILLIN SODIUM\TAZOBACTAM SODIUM
     Route: 065
  20. ZOLPIDEM [Suspect]
     Active Substance: ZOLPIDEM\ZOLPIDEM TARTRATE
     Indication: INSOMNIA
     Route: 065
  21. PARACETAMOL [Suspect]
     Active Substance: ACETAMINOPHEN
     Route: 065
  22. HEPARIN [Suspect]
     Active Substance: HEPARIN SODIUM
     Route: 065
  23. ALPRAZOLAM. [Suspect]
     Active Substance: ALPRAZOLAM
     Route: 065
  24. VENLAFAXINE [Suspect]
     Active Substance: VENLAFAXINE HYDROCHLORIDE
     Route: 065
  25. PREDNISOLONE. [Suspect]
     Active Substance: PREDNISOLONE
     Route: 065
  26. HALOPERIDOL. [Suspect]
     Active Substance: HALOPERIDOL
     Route: 065
  27. AMIKACIN [Concomitant]
     Active Substance: AMIKACIN
     Route: 065

REACTIONS (17)
  - Tachycardia [Recovering/Resolving]
  - Physical assault [Unknown]
  - Toxicity to various agents [Unknown]
  - Disturbance in attention [Recovering/Resolving]
  - Weight fluctuation [Unknown]
  - Coma [Recovering/Resolving]
  - Victim of crime [Unknown]
  - Toxicity to various agents [Recovering/Resolving]
  - Lung disorder [Recovering/Resolving]
  - Nervous system disorder [Recovered/Resolved]
  - Septic shock [Recovering/Resolving]
  - Drug diversion [Unknown]
  - Hyperthermia [Recovering/Resolving]
  - Coma [Recovered/Resolved]
  - Acute respiratory distress syndrome [Recovering/Resolving]
  - Altered state of consciousness [Recovering/Resolving]
  - Overdose [Unknown]
